FAERS Safety Report 18087602 (Version 2)
Quarter: 2020Q3

REPORT INFORMATION
  Report Type: Spontaneous
  Country: JP (occurrence: JP)
  Receive Date: 20200729
  Receipt Date: 20200807
  Transmission Date: 20201103
  Serious: Yes (Death, Hospitalization)
  Sender: FDA-Public Use
  Company Number: JP-MYLANLABS-2020M1067807

PATIENT
  Age: 57 Year
  Sex: Male

DRUGS (10)
  1. AZITHROMYCIN ANHYDROUS. [Suspect]
     Active Substance: AZITHROMYCIN ANHYDROUS
     Indication: MYCOBACTERIUM ABSCESSUS INFECTION
     Route: 065
  2. LINEZOLID. [Suspect]
     Active Substance: LINEZOLID
     Indication: MYCOBACTERIUM ABSCESSUS INFECTION
     Route: 065
  3. PIPERACILLIN/TAZOBACTAM [Suspect]
     Active Substance: PIPERACILLIN SODIUM\TAZOBACTAM SODIUM
     Indication: MYCOBACTERIUM ABSCESSUS INFECTION
     Route: 065
  4. IMIPENEM AND CILASTATIN [Suspect]
     Active Substance: CILASTATIN SODIUM\IMIPENEM
     Indication: MYCOBACTERIUM ABSCESSUS INFECTION
     Route: 065
  5. PREDNISOLONE. [Suspect]
     Active Substance: PREDNISOLONE
     Indication: MYASTHENIA GRAVIS
     Dosage: RECEIVING FOR }5 YEARS
     Route: 065
  6. SITAFLOXACIN [Suspect]
     Active Substance: SITAFLOXACIN
     Indication: MYCOBACTERIUM ABSCESSUS INFECTION
     Route: 065
  7. IMMUNOGLOBULIN                     /00025201/ [Concomitant]
     Active Substance: HUMAN IMMUNOGLOBULIN G
     Indication: PRODUCT USED FOR UNKNOWN INDICATION
     Route: 065
  8. LEVOFLOXACIN. [Suspect]
     Active Substance: LEVOFLOXACIN
     Indication: MYCOBACTERIUM ABSCESSUS INFECTION
     Route: 065
  9. MINOCYCLINE [Suspect]
     Active Substance: MINOCYCLINE HYDROCHLORIDE
     Indication: MYCOBACTERIUM ABSCESSUS INFECTION
     Route: 065
  10. TACROLIMUS. [Suspect]
     Active Substance: TACROLIMUS
     Indication: MYASTHENIA GRAVIS
     Dosage: RECEIVING FOR }5 YEARS
     Route: 065

REACTIONS (6)
  - Mycobacterium abscessus infection [Fatal]
  - Drug ineffective [Fatal]
  - Abscess intestinal [Unknown]
  - Rectal perforation [Recovering/Resolving]
  - Large intestine perforation [Recovering/Resolving]
  - Spondylitis [Not Recovered/Not Resolved]
